FAERS Safety Report 24923593 (Version 1)
Quarter: 2025Q1

REPORT INFORMATION
  Report Type: Report from Study
  Country: DE (occurrence: DE)
  Receive Date: 20250204
  Receipt Date: 20250204
  Transmission Date: 20250409
  Serious: Yes (Other)
  Sender: MYLAN
  Company Number: DE-MYLANLABS-2025M1009394

PATIENT
  Sex: Female

DRUGS (1)
  1. GLATIRAMER [Suspect]
     Active Substance: GLATIRAMER
     Indication: Multiple sclerosis
     Dosage: 20 MILLIGRAM PER MILLILITRE, QD
     Route: 058
     Dates: start: 20180311

REACTIONS (2)
  - Spinal stenosis [Not Recovered/Not Resolved]
  - Injection site induration [Not Recovered/Not Resolved]
